FAERS Safety Report 25385212 (Version 1)
Quarter: 2025Q2

REPORT INFORMATION
  Report Type: Spontaneous
  Country: US (occurrence: US)
  Receive Date: 20250602
  Receipt Date: 20250602
  Transmission Date: 20250717
  Serious: No
  Sender: GRIFOLS
  Company Number: US-IGSA-BIG0035422

PATIENT
  Age: 14 Year
  Sex: Male
  Weight: 36.5 kg

DRUGS (13)
  1. GAMUNEX-C [Suspect]
     Active Substance: HUMAN IMMUNOGLOBULIN G
     Indication: Secondary immunodeficiency
     Route: 042
     Dates: start: 20151003
  2. GAMUNEX-C [Suspect]
     Active Substance: HUMAN IMMUNOGLOBULIN G
     Route: 042
     Dates: start: 20151003
  3. GAMUNEX-C [Suspect]
     Active Substance: HUMAN IMMUNOGLOBULIN G
     Route: 042
     Dates: start: 20151003
  4. AMOXICILLIN [Concomitant]
     Active Substance: AMOXICILLIN
     Route: 048
  5. ATOVAQUONE [Concomitant]
     Active Substance: ATOVAQUONE
     Dosage: 450 MILLIGRAM, QD
     Route: 048
     Dates: start: 20241230
  6. CITRIC ACID;SODIUM CITRATE [Concomitant]
     Dosage: 10 MILLILITER, BID
     Route: 048
     Dates: start: 20240908
  7. FILGRASTIM [Concomitant]
     Active Substance: FILGRASTIM
     Dosage: 226 MICROGRAM, QD
     Route: 058
     Dates: start: 20220819
  8. FILGRASTIM [Concomitant]
     Active Substance: FILGRASTIM
     Dosage: 296 MICROGRAM, QD
     Route: 058
     Dates: start: 20240903
  9. INSULIN NOS [Concomitant]
     Active Substance: INSULIN NOS
     Dates: start: 20220819
  10. PANTOPRAZOLE [Concomitant]
     Active Substance: PANTOPRAZOLE
     Dosage: 12 MILLIGRAM, QD
     Route: 048
     Dates: start: 20250127
  11. PREDNISONE [Concomitant]
     Active Substance: PREDNISONE
     Dosage: 4 MILLIGRAM, QD
     Route: 048
     Dates: start: 20240523
  12. SIROLIMUS [Concomitant]
     Active Substance: SIROLIMUS
     Dosage: 0.5 MILLIGRAM, BID
     Route: 048
     Dates: start: 20250519
  13. TACROLIMUS [Concomitant]
     Active Substance: TACROLIMUS
     Dosage: 0.8 MILLIGRAM, BID
     Route: 048
     Dates: start: 20240610

REACTIONS (4)
  - Rash [Recovered/Resolved]
  - Pruritus [Recovered/Resolved]
  - Urticaria [Recovered/Resolved]
  - Erythema [Recovered/Resolved]

NARRATIVE: CASE EVENT DATE: 20250519
